FAERS Safety Report 4662462-4 (Version None)
Quarter: 2005Q2

REPORT INFORMATION
  Report Type: 
  Country: None (occurrence: None)
  Receive Date: 20050512
  Receipt Date: 20050503
  Transmission Date: 20051028
  Serious: Yes (Hospitalization, Other)
  Sender: FDA-Public Use
  Company Number: DEWYE639704MAY05

PATIENT
  Age: 50 Year
  Sex: Female

DRUGS (13)
  1. VENLAFAXINE HCL [Suspect]
     Indication: DEPRESSION
     Dosage: SEE IMAGE
     Route: 048
     Dates: start: 20041208, end: 20041214
  2. VENLAFAXINE HCL [Suspect]
     Indication: DEPRESSION
     Dosage: SEE IMAGE
     Route: 048
     Dates: start: 20041215, end: 20050207
  3. AKINETON [Concomitant]
  4. LORAZEPAM [Concomitant]
  5. OMEPRAZOLE [Concomitant]
  6. DHE (DIHYDROERGOTAMINE MESILATE) [Concomitant]
  7. MAGNETRANS (MAGNSIUM ASPARTATE) [Concomitant]
  8. STAURODORM NEU (FLURAZEPAM) [Concomitant]
  9. CLIVARIN (HEPARIN-FRACTION, SODIUM SALT) [Concomitant]
  10. DIAZEPAM [Concomitant]
  11. TAXILAN (PERAZINE) [Concomitant]
  12. HALOPERIDOL [Concomitant]
  13. LACTOBACILLUS ACIDOPHILUS (LACTOBACILLUS ACIDOPHILUS) [Concomitant]

REACTIONS (8)
  - BLOOD LACTATE DEHYDROGENASE INCREASED [None]
  - CHEST X-RAY ABNORMAL [None]
  - CHOLESTASIS [None]
  - EMPHYSEMA [None]
  - HEPATITIS TOXIC [None]
  - HYPONATRAEMIA [None]
  - SERUM FERRITIN INCREASED [None]
  - ULTRASOUND SCAN ABNORMAL [None]
